FAERS Safety Report 18821941 (Version 1)
Quarter: 2021Q1

REPORT INFORMATION
  Report Type: Spontaneous
  Country: US (occurrence: US)
  Receive Date: 20210202
  Receipt Date: 20210202
  Transmission Date: 20210419
  Serious: Yes (Hospitalization, Other)
  Sender: FDA-Public Use
  Company Number: US-ASTRAZENECA-2021A020347

PATIENT
  Sex: Female
  Weight: 122.5 kg

DRUGS (5)
  1. PREDNISONE. [Suspect]
     Active Substance: PREDNISONE
     Indication: ASTHMA
     Route: 065
  2. SYMBICORT [Suspect]
     Active Substance: BUDESONIDE\FORMOTEROL FUMARATE DIHYDRATE
     Indication: ASTHMA
     Dosage: 160/4.5 MCG 2 PUFFS TWICE A DAY
     Route: 055
  3. FASENRA [Suspect]
     Active Substance: BENRALIZUMAB
     Indication: ASTHMA
     Dosage: THEN EVERY 2 MONTHS THEREAFTER, FIRST DOSE WAS 14?JAN?2021,
     Route: 058
     Dates: start: 20210114
  4. ALBUTEROL IPRATROPIUM BROMIDE [Concomitant]
  5. FASENRA [Suspect]
     Active Substance: BENRALIZUMAB
     Indication: ASTHMA
     Dosage: 30 MG BY INJECTION ONCE A MONTH FOR THE FIRST 3 DOSES
     Route: 058

REACTIONS (4)
  - Asthma [Recovered/Resolved]
  - Drug ineffective [Not Recovered/Not Resolved]
  - Dyspnoea exertional [Not Recovered/Not Resolved]
  - Weight increased [Not Recovered/Not Resolved]
